FAERS Safety Report 24345362 (Version 1)
Quarter: 2024Q3

REPORT INFORMATION
  Report Type: Spontaneous
  Country: JP (occurrence: JP)
  Receive Date: 20240920
  Receipt Date: 20240920
  Transmission Date: 20241017
  Serious: Yes (Death, Other)
  Sender: GENMAB
  Company Number: JP-GENMAB-2024-03138

PATIENT
  Age: 8 Decade
  Sex: Male

DRUGS (2)
  1. EPKINLY [Suspect]
     Active Substance: EPCORITAMAB-BYSP
     Indication: Diffuse large B-cell lymphoma
     Dosage: 0.8 MILLIGRAM, SINGLE
     Route: 058
     Dates: start: 20240814, end: 20240814
  2. EPKINLY [Suspect]
     Active Substance: EPCORITAMAB-BYSP
     Dosage: UNK
     Route: 058
     Dates: start: 20240821, end: 20240821

REACTIONS (3)
  - Hepatitis [Fatal]
  - Diffuse large B-cell lymphoma [Fatal]
  - COVID-19 [Recovering/Resolving]

NARRATIVE: CASE EVENT DATE: 20240101
